FAERS Safety Report 6981333-1 (Version None)
Quarter: 2010Q3

REPORT INFORMATION
  Report Type: 
  Country: None (occurrence: None)
  Receive Date: 20100909
  Receipt Date: 20100823
  Transmission Date: 20110219
  Serious: Yes (Other)
  Sender: FDA-Public Use
  Company Number: 20100407

PATIENT
  Age: 73 Year
  Sex: Female

DRUGS (2)
  1. METHYLENE BLUE INJECTION, USP (0301-10) 1% [Suspect]
     Indication: PARATHYROID DISORDER
     Dosage: 5 MG/KG IN 500 ML NSS, INTRAVENOUS
     Route: 042
  2. ESCITALOPRAM [Concomitant]

REACTIONS (2)
  - ENCEPHALOPATHY [None]
  - POST PROCEDURAL COMPLICATION [None]
